FAERS Safety Report 8809476 (Version 1)
Quarter: 2012Q4

REPORT INFORMATION
  Report Type: 
  Country: IT (occurrence: IT)
  Receive Date: 20120926
  Receipt Date: 20120926
  Transmission Date: 20130627
  Serious: Yes (Other)
  Sender: FDA-Public Use
  Company Number: IT-ROCHE-1126131

PATIENT
  Age: 45 Year
  Sex: Female

DRUGS (2)
  1. OMALIZUMAB [Suspect]
     Indication: ASTHMA
     Dosage: Vial 150 mg
     Route: 058
     Dates: start: 20090420
  2. SERETIDE DISKUS [Concomitant]
     Dosage: 50/500 DF
     Route: 065

REACTIONS (1)
  - Vascular endothelial growth factor assay [Unknown]
